FAERS Safety Report 4761949-3 (Version None)
Quarter: 2005Q3

REPORT INFORMATION
  Report Type: 
  Country: None (occurrence: None)
  Receive Date: 20050906
  Receipt Date: 20040312
  Transmission Date: 20060218
  Serious: Yes (Hospitalization, Other)
  Sender: FDA-Public Use
  Company Number: US-MERCK-0403USA01341

PATIENT
  Age: 50 Year
  Sex: Female
  Weight: 79 kg

DRUGS (27)
  1. SEROQUEL [Concomitant]
     Route: 065
     Dates: start: 20021101, end: 20030101
  2. SEROQUEL [Concomitant]
     Route: 065
     Dates: start: 20030101, end: 20040801
  3. SOMA [Concomitant]
     Route: 065
     Dates: start: 20020101
  4. PREMARIN [Concomitant]
     Route: 065
     Dates: start: 20020101, end: 20030313
  5. AMBIEN [Concomitant]
     Route: 065
     Dates: start: 20000101
  6. DOXEPIN HYDROCHLORIDE [Concomitant]
     Route: 065
     Dates: start: 20020101
  7. FLEXERIL [Concomitant]
     Route: 048
     Dates: start: 20020101
  8. PROZAC [Concomitant]
     Route: 065
     Dates: start: 20020101, end: 20030101
  9. PROZAC [Concomitant]
     Route: 065
     Dates: start: 20030101
  10. PROZAC [Concomitant]
     Route: 065
     Dates: start: 19980101, end: 20010101
  11. VIOXX [Suspect]
     Indication: BONE DISORDER
     Route: 048
     Dates: start: 20021219, end: 20030827
  12. VIOXX [Suspect]
     Indication: ARTHROPATHY
     Route: 048
     Dates: start: 20021219, end: 20030827
  13. ALTACE [Concomitant]
     Route: 065
     Dates: start: 20030313
  14. NEURONTIN [Concomitant]
     Route: 065
     Dates: start: 20030812
  15. VICODIN [Concomitant]
     Route: 065
     Dates: start: 20030101
  16. POTASSIUM (UNSPECIFIED) [Concomitant]
     Route: 065
     Dates: end: 20030313
  17. FOLTX [Concomitant]
     Route: 065
     Dates: start: 20030313
  18. LIPITOR [Concomitant]
     Route: 065
     Dates: start: 20030320, end: 20030709
  19. ZOCOR [Concomitant]
     Route: 065
     Dates: start: 20030709
  20. PLAVIX [Concomitant]
     Route: 065
     Dates: start: 20030313
  21. TOPROL-XL [Concomitant]
     Route: 065
     Dates: start: 20030313, end: 20030320
  22. TOPROL-XL [Concomitant]
     Route: 065
     Dates: start: 20030320, end: 20040206
  23. PREVACID [Concomitant]
     Route: 065
     Dates: start: 20030101
  24. FOLIC ACID [Concomitant]
     Route: 065
     Dates: start: 20030313
  25. ASPIRIN [Concomitant]
     Route: 065
     Dates: start: 20030313
  26. NITROGLYCERIN [Concomitant]
     Route: 065
     Dates: start: 20030313
  27. LINSEED OIL [Concomitant]
     Route: 065
     Dates: start: 20030313

REACTIONS (97)
  - ABDOMINAL PAIN [None]
  - ACUTE MYOCARDIAL INFARCTION [None]
  - ACUTE PSYCHOSIS [None]
  - AMNESIA [None]
  - ANXIETY [None]
  - ARACHNOIDITIS [None]
  - ASTHENIA [None]
  - ASTHMA [None]
  - BACK DISORDER [None]
  - BACK PAIN [None]
  - BLOOD CHOLESTEROL INCREASED [None]
  - BLOOD GLUCOSE INCREASED [None]
  - BLOOD POTASSIUM DECREASED [None]
  - BLOOD THYROID STIMULATING HORMONE DECREASED [None]
  - BLOOD TRIGLYCERIDES INCREASED [None]
  - BRONCHITIS ACUTE [None]
  - CARDIAC FAILURE CONGESTIVE [None]
  - CHEST PAIN [None]
  - CHRONIC OBSTRUCTIVE PULMONARY DISEASE [None]
  - CONSTIPATION [None]
  - COORDINATION ABNORMAL [None]
  - CORONARY ARTERY ATHEROSCLEROSIS [None]
  - CORONARY ARTERY DISEASE [None]
  - CORONARY ARTERY THROMBOSIS [None]
  - COUGH [None]
  - CRYING [None]
  - DEMENTIA ALZHEIMER'S TYPE [None]
  - DEPRESSION [None]
  - DIARRHOEA [None]
  - DIZZINESS [None]
  - DRUG INEFFECTIVE [None]
  - DYSPHAGIA [None]
  - DYSPNOEA [None]
  - ECCHYMOSIS [None]
  - EJECTION FRACTION DECREASED [None]
  - ESCHERICHIA INFECTION [None]
  - EUTHYROID SICK SYNDROME [None]
  - FATIGUE [None]
  - FIBROMYALGIA [None]
  - GASTROENTERITIS [None]
  - HAEMATOCRIT DECREASED [None]
  - HAEMATOMA [None]
  - HAEMOGLOBIN DECREASED [None]
  - HAEMORRHAGE [None]
  - HALLUCINATION [None]
  - HEADACHE [None]
  - HERPES SIMPLEX [None]
  - HYPERACUSIS [None]
  - HYPERHIDROSIS [None]
  - HYPERLIPIDAEMIA [None]
  - HYPERTENSION [None]
  - HYPOAESTHESIA [None]
  - INSOMNIA [None]
  - INTERVERTEBRAL DISC DEGENERATION [None]
  - INTERVERTEBRAL DISC PROTRUSION [None]
  - IRRITABLE BOWEL SYNDROME [None]
  - ISCHAEMIC CARDIOMYOPATHY [None]
  - KYPHOSIS [None]
  - MENTAL DISORDER DUE TO A GENERAL MEDICAL CONDITION [None]
  - MYOFASCIAL PAIN SYNDROME [None]
  - NASAL CONGESTION [None]
  - NASAL DISORDER [None]
  - NASAL POLYPS [None]
  - NAUSEA [None]
  - NECK PAIN [None]
  - NEURALGIA [None]
  - NIGHT SWEATS [None]
  - OEDEMA PERIPHERAL [None]
  - OSTEOARTHRITIS [None]
  - PAIN [None]
  - PANIC DISORDER [None]
  - PARAESTHESIA [None]
  - PEPTIC ULCER [None]
  - PHOTOPHOBIA [None]
  - PLATELET COUNT DECREASED [None]
  - PLATELET FUNCTION TEST ABNORMAL [None]
  - POST LAMINECTOMY SYNDROME [None]
  - PYELONEPHRITIS ACUTE [None]
  - RENAL CYST [None]
  - RHEUMATOID ARTHRITIS [None]
  - RHINALGIA [None]
  - SKIN CANCER [None]
  - SLEEP APNOEA SYNDROME [None]
  - SLEEP DISORDER [None]
  - SNORING [None]
  - SPONDYLOLISTHESIS [None]
  - STRESS INCONTINENCE [None]
  - TENDERNESS [None]
  - TINNITUS [None]
  - TREMOR [None]
  - URINARY TRACT INFECTION [None]
  - VASCULAR PSEUDOANEURYSM [None]
  - VENTRICULAR HYPERTROPHY [None]
  - VENTRICULAR HYPOKINESIA [None]
  - VISION BLURRED [None]
  - VOMITING [None]
  - WHEEZING [None]
